FAERS Safety Report 4342296-0 (Version None)
Quarter: 2004Q2

REPORT INFORMATION
  Report Type: 
  Country: None (occurrence: None)
  Receive Date: 20040415
  Receipt Date: 20040407
  Transmission Date: 20050107
  Serious: Yes (Hospitalization)
  Sender: FDA-Public Use
  Company Number: OMPQ-PR-0312S-0947

PATIENT
  Age: 46 Year
  Sex: Male

DRUGS (5)
  1. OMNIPAQUE 70 [Suspect]
     Indication: CARDIAC STRESS TEST ABNORMAL
     Dosage: 100 ML, SINGLE DOSE, I.A.
     Dates: start: 20031201, end: 20031201
  2. ASPIRIN [Concomitant]
  3. METOPROLOL [Concomitant]
  4. SEDATIVE [Concomitant]
  5. BETA BLOCKER [Concomitant]

REACTIONS (2)
  - AGGRESSION [None]
  - ENCEPHALOPATHY [None]
